FAERS Safety Report 19042592 (Version 1)
Quarter: 2021Q1

REPORT INFORMATION
  Report Type: Spontaneous
  Country: PT (occurrence: PT)
  Receive Date: 20210323
  Receipt Date: 20210323
  Transmission Date: 20210420
  Serious: Yes (Hospitalization, Other)
  Sender: FDA-Public Use
  Company Number: PT-SUN PHARMACEUTICAL INDUSTRIES LTD-2021R1-286307

PATIENT
  Age: 27 Year
  Sex: Male

DRUGS (6)
  1. TESTOSTERONE. [Suspect]
     Active Substance: TESTOSTERONE
     Indication: MUSCLE MASS
  2. OXYMETHOLONE [Concomitant]
     Active Substance: OXYMETHOLONE
     Indication: STEROID THERAPY
  3. TESTOSTERONE. [Suspect]
     Active Substance: TESTOSTERONE
     Indication: STEROID THERAPY
     Dosage: UNK, WEEKLY
     Route: 030
  4. NANDROLONE [Concomitant]
     Active Substance: NANDROLONE
     Indication: MUSCLE MASS
     Dosage: 300 MILLIGRAM, DAILY
     Route: 065
  5. NANDROLONE [Concomitant]
     Active Substance: NANDROLONE
     Indication: STEROID THERAPY
  6. OXYMETHOLONE [Concomitant]
     Active Substance: OXYMETHOLONE
     Indication: MUSCLE MASS
     Dosage: 400 MILLIGRAM, DAILY
     Route: 065

REACTIONS (2)
  - Cerebral venous thrombosis [Recovered/Resolved]
  - Drug abuse [Unknown]
